FAERS Safety Report 8604799-X (Version None)
Quarter: 2012Q3

REPORT INFORMATION
  Report Type: 
  Country: None (occurrence: None)
  Receive Date: 20120820
  Receipt Date: 20120810
  Transmission Date: 20120928
  Serious: Yes (Hospitalization, Other)
  Sender: FDA-Public Use
  Company Number: CA-ELI_LILLY_AND_COMPANY-CA201205004419

PATIENT
  Age: 86 Year
  Sex: Female
  Weight: 45 kg

DRUGS (4)
  1. OMEPRAZOLE (PRISOLEC) [Concomitant]
  2. FORTEO [Suspect]
     Dosage: 20 UG, QD
     Route: 058
  3. FORTEO [Suspect]
     Indication: OSTEOPOROSIS
     Dosage: 20 UG, QD
     Route: 058
     Dates: start: 20101202, end: 20111107
  4. FORTEO [Suspect]
     Dosage: 20 UG, QD
     Route: 058
     Dates: start: 20111110

REACTIONS (4)
  - BALANCE DISORDER [None]
  - HUMERUS FRACTURE [None]
  - JOINT DISLOCATION [None]
  - FALL [None]
